FAERS Safety Report 4594123-4 (Version None)
Quarter: 2005Q1

REPORT INFORMATION
  Report Type: 
  Country: None (occurrence: None)
  Receive Date: 20050222
  Receipt Date: 20050204
  Transmission Date: 20050727
  Serious: Yes (Hospitalization)
  Sender: FDA-Public Use
  Company Number: L05-CHN-00499-01

PATIENT
  Age: 24 Year
  Sex: Female

DRUGS (6)
  1. CARBAMAZEPINE [Suspect]
     Indication: TEMPORAL LOBE EPILEPSY
     Dosage: 400 MG TID
  2. DEXAMETHASONE [Suspect]
     Indication: DEXAMETHASONE SUPPRESSION TEST
     Dosage: 1 MG ONCE
  3. DEXAMETHASONE [Suspect]
     Indication: DEXAMETHASONE SUPPRESSION TEST
     Dosage: 0.5 MG QID
  4. ALPRAZOLAM [Concomitant]
  5. SERTRALINE HCL [Concomitant]
  6. PROPRANOLOL [Concomitant]

REACTIONS (3)
  - DEXAMETHASONE SUPPRESSION TEST POSITIVE [None]
  - DRUG INTERACTION [None]
  - FALSE POSITIVE LABORATORY RESULT [None]
